FAERS Safety Report 14364493 (Version 1)
Quarter: 2018Q1

REPORT INFORMATION
  Report Type: Spontaneous
  Country: US (occurrence: US)
  Receive Date: 20180107
  Receipt Date: 20180107
  Transmission Date: 20180509
  Serious: No
  Sender: FDA-Public Use
  Company Number: None

PATIENT
  Age: 21 Year
  Sex: Male

DRUGS (1)
  1. SYPRINE [Suspect]
     Active Substance: TRIENTINE HYDROCHLORIDE

REACTIONS (3)
  - Oesophageal ulcer [None]
  - Product distribution issue [None]
  - Treatment noncompliance [None]

NARRATIVE: CASE EVENT DATE: 20180106
